FAERS Safety Report 9710504 (Version 2)
Quarter: 2013Q4

REPORT INFORMATION
  Report Type: Spontaneous
  Country: US (occurrence: US)
  Receive Date: 20131126
  Receipt Date: 20131126
  Transmission Date: 20140711
  Serious: Yes (Hospitalization)
  Sender: FDA-Public Use
  Company Number: US-BRISTOL-MYERS SQUIBB COMPANY-18837971

PATIENT
  Age: 65 Year
  Sex: Male
  Weight: 93.87 kg

DRUGS (4)
  1. BYETTA [Suspect]
     Dosage: EITHER IN DEC-2011 OR JAN-2012
  2. CARVEDILOL [Concomitant]
  3. NOVOLOG [Concomitant]
  4. HYDROCHLOROTHIAZIDE [Concomitant]

REACTIONS (1)
  - Pancreatitis [Unknown]
